FAERS Safety Report 19425871 (Version 4)
Quarter: 2021Q3

REPORT INFORMATION
  Report Type: Report from Study
  Country: CO (occurrence: CO)
  Receive Date: 20210616
  Receipt Date: 20210915
  Transmission Date: 20211014
  Serious: Yes (Other)
  Sender: FDA-Public Use
  Company Number: NVSC2021CO120688

PATIENT
  Sex: Female
  Weight: 63 kg

DRUGS (8)
  1. LOSARTAN. [Suspect]
     Active Substance: LOSARTAN
     Indication: HYPERTENSION
     Dosage: 100 MG, QD (STARTED 10 YEARS AGO)
     Route: 048
  2. JANUMET [Concomitant]
     Active Substance: METFORMIN HYDROCHLORIDE\SITAGLIPTIN PHOSPHATE
     Indication: DIABETES MELLITUS
     Dosage: 500 MG, QD (STARTED 20 YEARS AGO)
     Route: 048
  3. INSULIN [Concomitant]
     Active Substance: INSULIN NOS
     Indication: DIABETES MELLITUS
     Dosage: 20 DF, QD ( STARTED 10 YEARS AGO)
     Route: 058
  4. GLAUCOMED [Concomitant]
     Indication: GLAUCOMA
     Dosage: 0.5 DF, QD
     Route: 048
     Dates: start: 202105
  5. LUCENTIS [Suspect]
     Active Substance: RANIBIZUMAB
     Dosage: UNK, PRN
     Route: 047
  6. LUCENTIS [Suspect]
     Active Substance: RANIBIZUMAB
     Indication: AGE-RELATED MACULAR DEGENERATION
     Dosage: UNK (STARTED 6 MONTHS AGO)
     Route: 047
  7. LUCENTIS [Suspect]
     Active Substance: RANIBIZUMAB
     Dosage: UNK
     Route: 047
     Dates: start: 20210520
  8. KRYTANTEK [Concomitant]
     Active Substance: BRIMONIDINE TARTRATE\DORZOLAMIDE HYDROCHLORIDE\TIMOLOL MALEATE
     Indication: GLAUCOMA
     Dosage: 3 DF, Q8H ( STARTED DATE: 10 YEARS AGO, DROPS)
     Route: 047

REACTIONS (2)
  - Blindness [Unknown]
  - Drug ineffective [Unknown]
